FAERS Safety Report 20325527 (Version 4)
Quarter: 2022Q1

REPORT INFORMATION
  Report Type: Spontaneous
  Country: US (occurrence: None)
  Receive Date: 20220112
  Receipt Date: 20220302
  Transmission Date: 20220423
  Serious: Yes (Other)
  Sender: FDA-Public Use
  Company Number: US-ROCHE-2995848

PATIENT
  Age: 61 Year
  Sex: Male
  Weight: 81.5 kg

DRUGS (1)
  1. XELODA [Suspect]
     Active Substance: CAPECITABINE
     Indication: Anal cancer
     Route: 048
     Dates: start: 20211213, end: 20220113

REACTIONS (8)
  - Vertigo [Unknown]
  - Stomatitis [Recovered/Resolved]
  - Palmar-plantar erythrodysaesthesia syndrome [Recovered/Resolved]
  - Recall phenomenon [Unknown]
  - Blister [Unknown]
  - Skin ulcer [Unknown]
  - Haemorrhage [Unknown]
  - Swelling [Unknown]

NARRATIVE: CASE EVENT DATE: 20211222
